FAERS Safety Report 8012730-3 (Version None)
Quarter: 2011Q4

REPORT INFORMATION
  Report Type: 
  Country: None (occurrence: None)
  Receive Date: 20111229
  Receipt Date: 20111219
  Transmission Date: 20120403
  Serious: Yes (Hospitalization)
  Sender: FDA-Public Use
  Company Number: US-BAYER-2011-032319

PATIENT
  Age: 47 Year
  Sex: Female
  Weight: 76 kg

DRUGS (3)
  1. MULTI-VITAMIN [Concomitant]
     Indication: SUPPLEMENTATION THERAPY
     Dosage: DAILY
     Route: 048
  2. CLARINEX [Concomitant]
     Indication: RASH
     Dosage: 1 DAILY
     Route: 048
     Dates: start: 20060911
  3. YAZ [Suspect]
     Indication: MENSTRUATION IRREGULAR
     Dosage: UNK
     Dates: start: 20060911, end: 20061009

REACTIONS (14)
  - MUSCULAR WEAKNESS [None]
  - MEMORY IMPAIRMENT [None]
  - DISTURBANCE IN ATTENTION [None]
  - CEREBROVASCULAR ACCIDENT [None]
  - EMOTIONAL DISTRESS [None]
  - VISION BLURRED [None]
  - FEAR [None]
  - ANXIETY [None]
  - VIITH NERVE PARALYSIS [None]
  - DYSARTHRIA [None]
  - APHASIA [None]
  - AGRAPHIA [None]
  - SPEECH DISORDER [None]
  - PAIN [None]
